FAERS Safety Report 4375853-6 (Version None)
Quarter: 2004Q2

REPORT INFORMATION
  Report Type: 
  Country: None (occurrence: None)
  Receive Date: 20040611
  Receipt Date: 20040601
  Transmission Date: 20050107
  Serious: Yes (Other)
  Sender: FDA-Public Use
  Company Number: US-BRISTOL-MYERS SQUIBB COMPANY-12601597

PATIENT
  Sex: Female
  Weight: 5 kg

DRUGS (7)
  1. METFORMIN HCL [Suspect]
     Route: 064
  2. STARLIX [Suspect]
     Route: 064
  3. GLYBURIDE [Suspect]
     Route: 064
  4. INSULIN [Suspect]
     Route: 064
  5. COZAAR [Concomitant]
     Route: 064
  6. NIFEDICAL [Concomitant]
     Route: 064
  7. KLOR-CON [Concomitant]
     Route: 064

REACTIONS (6)
  - HYPOGLYCAEMIA [None]
  - HYPOXIA [None]
  - NEONATAL ASPIRATION [None]
  - PATENT DUCTUS ARTERIOSUS [None]
  - PERSISTENT FOETAL CIRCULATION [None]
  - PREGNANCY [None]
